FAERS Safety Report 17088456 (Version 1)
Quarter: 2019Q4

REPORT INFORMATION
  Report Type: Spontaneous
  Country: HR (occurrence: HR)
  Receive Date: 20191128
  Receipt Date: 20191128
  Transmission Date: 20200122
  Serious: Yes (Death)
  Sender: FDA-Public Use
  Company Number: HR-JNJFOC-20191112376

PATIENT
  Age: 54 Year
  Sex: Male
  Weight: 86 kg

DRUGS (8)
  1. PRAZINE (PROMAZINE HYDROCHLORIDE) [Concomitant]
     Active Substance: PROMAZINE HYDROCHLORIDE
  2. HALOPERIDOL. [Suspect]
     Active Substance: HALOPERIDOL
     Indication: SCHIZOPHRENIA
     Route: 048
     Dates: start: 20180428, end: 20190218
  3. CERSON (NITRAZEPAM) [Concomitant]
     Active Substance: NITRAZEPAM
     Route: 065
  4. DIAZEPAM. [Concomitant]
     Active Substance: DIAZEPAM
  5. HALOPERIDOL DECANOATE. [Concomitant]
     Active Substance: HALOPERIDOL DECANOATE
     Route: 065
  6. AKINETON [Concomitant]
     Active Substance: BIPERIDEN HYDROCHLORIDE
  7. LEPONEX [Concomitant]
     Active Substance: CLOZAPINE
  8. ARIPIPRAZOL MYLAN [Concomitant]
     Route: 065

REACTIONS (9)
  - Altered state of consciousness [Fatal]
  - Hypertonia [Fatal]
  - Muscle rigidity [Fatal]
  - Pyrexia [Fatal]
  - Off label use [Unknown]
  - Incorrect dose administered [Unknown]
  - Death [Fatal]
  - Neuroleptic malignant syndrome [Fatal]
  - Chorea [Fatal]
